FAERS Safety Report 8385709-X (Version None)
Quarter: 2012Q2

REPORT INFORMATION
  Report Type: 
  Country: None (occurrence: None)
  Receive Date: 20120525
  Receipt Date: 20120515
  Transmission Date: 20120825
  Serious: Yes (Life-Threatening, Hospitalization)
  Sender: FDA-Public Use
  Company Number: FR-BRISTOL-MYERS SQUIBB COMPANY-16598286

PATIENT
  Age: 65 Year
  Sex: Female

DRUGS (5)
  1. LANTUS [Concomitant]
     Route: 058
  2. IRBESARTAN + HYDROCHLOROTHIAZIDE [Suspect]
     Indication: HYPERTENSION
     Dosage: 1DF= 300/12.5 MG
     Route: 048
     Dates: end: 20120412
  3. OMEPRAZOLE [Concomitant]
  4. METFORMIN HCL [Suspect]
     Indication: INSULIN-REQUIRING TYPE 2 DIABETES MELLITUS
     Route: 048
     Dates: end: 20120412
  5. ATORVASTATIN [Concomitant]
     Route: 048
     Dates: end: 20120412

REACTIONS (5)
  - SHOCK [None]
  - RENAL FAILURE ACUTE [None]
  - DIARRHOEA [None]
  - VOMITING [None]
  - LACTIC ACIDOSIS [None]
